FAERS Safety Report 5650771-1 (Version None)
Quarter: 2008Q1

REPORT INFORMATION
  Report Type: 
  Country: None (occurrence: None)
  Receive Date: 20080305
  Receipt Date: 20080227
  Transmission Date: 20080703
  Serious: Yes (Other)
  Sender: FDA-Public Use
  Company Number: PHHY2008BR02378

PATIENT
  Age: 11 Year
  Sex: Male
  Weight: 37 kg

DRUGS (1)
  1. TEGRETOL [Suspect]
     Indication: MENTAL DISORDER
     Dosage: 7 MG, BID
     Route: 048

REACTIONS (1)
  - DIPLEGIA [None]
